FAERS Safety Report 14129491 (Version 1)
Quarter: 2017Q4

REPORT INFORMATION
  Report Type: Spontaneous
  Country: AT (occurrence: AT)
  Receive Date: 20171026
  Receipt Date: 20171026
  Transmission Date: 20180321
  Serious: Yes (Hospitalization, Other)
  Sender: FDA-Public Use
  Company Number: AT-009507513-1710AUT011531

PATIENT
  Age: 64 Year
  Sex: Male

DRUGS (7)
  1. KEYTRUDA [Suspect]
     Active Substance: PEMBROLIZUMAB
     Dosage: 2 MG/KG, CYCLICAL,3 WEEK INTERVAL (CYCLE 12-14)
     Dates: start: 20160407, end: 20160519
  2. KEYTRUDA [Suspect]
     Active Substance: PEMBROLIZUMAB
     Dosage: 2 MG/KG, CYCLICAL,3 WEEK INTERVALS (5-8 CYCLE)
     Dates: start: 20151027
  3. KEYTRUDA [Suspect]
     Active Substance: PEMBROLIZUMAB
     Dosage: 2 MG/KG, CYCLICAL (CYCLE 9-11)
     Dates: start: 20160125, end: 20160317
  4. KEYTRUDA [Suspect]
     Active Substance: PEMBROLIZUMAB
     Dosage: 2 MG/KG, CYCLICAL (CYCLE 4)
     Dates: start: 20151006
  5. KEYTRUDA [Suspect]
     Active Substance: PEMBROLIZUMAB
     Indication: METASTATIC MALIGNANT MELANOMA
     Dosage: 2 MG/KG,3 CYCLES IN 3 WEEKLY INTERVALS
     Dates: start: 20150803
  6. KEYTRUDA [Suspect]
     Active Substance: PEMBROLIZUMAB
     Dosage: 2 MG/KG, CYCLICAL (CYCLE 26-35)
     Dates: start: 20170302
  7. KEYTRUDA [Suspect]
     Active Substance: PEMBROLIZUMAB
     Dosage: 2 MG/KG, CYCLICAL IN 3 WEEKLY INTERVALS (CYCLE:20-23)
     Dates: start: 20160922, end: 20161124

REACTIONS (5)
  - Appendicitis [Unknown]
  - Hypochromic anaemia [Unknown]
  - Intussusception [Unknown]
  - Malignant neoplasm progression [Unknown]
  - Off label use [Unknown]

NARRATIVE: CASE EVENT DATE: 20151005
